FAERS Safety Report 4294475-9 (Version None)
Quarter: 2004Q1

REPORT INFORMATION
  Report Type: 
  Country: None (occurrence: None)
  Receive Date: 20040211
  Receipt Date: 20040123
  Transmission Date: 20041129
  Serious: Yes (Hospitalization)
  Sender: FDA-Public Use
  Company Number: FR_040103470

PATIENT
  Age: 19 Year
  Sex: Male
  Weight: 103 kg

DRUGS (6)
  1. ZYPREXA [Suspect]
     Indication: PSYCHOTIC DISORDER
     Dates: end: 20031031
  2. FLUANXOL (FLUPENTIXOL DIHYDROCHLORIDE) [Concomitant]
  3. LEPTICUR (TROPATEPINE HYDROCHLORIDE) [Concomitant]
  4. TRANXENE [Concomitant]
  5. IMOVANE (ZOPICLONE) [Concomitant]
  6. SUBUTEX [Concomitant]

REACTIONS (11)
  - AGGRESSION [None]
  - AGITATION [None]
  - BLOOD URIC ACID INCREASED [None]
  - COMA [None]
  - DRUG TOXICITY [None]
  - HAEMODIALYSIS [None]
  - HEPATIC FAILURE [None]
  - MIOSIS [None]
  - PNEUMONIA ASPIRATION [None]
  - RENAL FAILURE [None]
  - RENAL TUBULAR NECROSIS [None]
